FAERS Safety Report 14588190 (Version 1)
Quarter: 2018Q1

REPORT INFORMATION
  Report Type: Spontaneous
  Country: DE (occurrence: DE)
  Receive Date: 20180301
  Receipt Date: 20180301
  Transmission Date: 20180509
  Serious: Yes (Other)
  Sender: FDA-Public Use
  Company Number: DE-SHIRE-DE201807921

PATIENT

DRUGS (1)
  1. HYQVIA [Suspect]
     Active Substance: HUMAN IMMUNOGLOBULIN G\HYALURONIDASE RECOMBINANT HUMAN
     Indication: PELVIC INFLAMMATORY DISEASE
     Dosage: 30 G, EVERY 4 WK
     Route: 065

REACTIONS (4)
  - Pneumonia [Unknown]
  - Sudden hearing loss [Unknown]
  - Deafness [Unknown]
  - Gastroenteritis [Unknown]
